FAERS Safety Report 15580208 (Version 2)
Quarter: 2018Q4

REPORT INFORMATION
  Report Type: Report from Study
  Country: CA (occurrence: CA)
  Receive Date: 20181102
  Receipt Date: 20181228
  Transmission Date: 20190205
  Serious: Yes (Other)
  Sender: FDA-Public Use
  Company Number: CA-BRISTOL-MYERS SQUIBB COMPANY-BMS-2018-037130

PATIENT
  Age: 69 Year
  Sex: Female

DRUGS (1)
  1. ABATACEPT [Suspect]
     Active Substance: ABATACEPT
     Indication: RHEUMATOID ARTHRITIS
     Dosage: 125 MG, QWK
     Route: 058
     Dates: start: 20140711

REACTIONS (13)
  - Herpes zoster [Recovering/Resolving]
  - Headache [Not Recovered/Not Resolved]
  - Insomnia [Unknown]
  - Rash macular [Unknown]
  - Hypoaesthesia [Unknown]
  - Oedema peripheral [Recovered/Resolved]
  - Pyrexia [Unknown]
  - Mobility decreased [Unknown]
  - Sepsis [Unknown]
  - Skin disorder [Recovered/Resolved]
  - Asthenia [Unknown]
  - Chills [Unknown]
  - Musculoskeletal stiffness [Unknown]

NARRATIVE: CASE EVENT DATE: 20180421
